FAERS Safety Report 8369107-0 (Version None)
Quarter: 2012Q2

REPORT INFORMATION
  Report Type: 
  Country: None (occurrence: None)
  Receive Date: 20120518
  Receipt Date: 20120508
  Transmission Date: 20120825
  Serious: Yes (Hospitalization)
  Sender: FDA-Public Use
  Company Number: HU-JNJFOC-20120410744

PATIENT
  Sex: Female
  Weight: 81 kg

DRUGS (21)
  1. POTASSIUM CHLORIDE [Concomitant]
     Route: 048
     Dates: start: 20050901
  2. RABEPRAZOLE SODIUM [Concomitant]
     Route: 048
     Dates: start: 20051201
  3. DIVIGEL [Concomitant]
     Route: 062
     Dates: start: 20050901
  4. LEVOTHYROXINE SODIUM [Concomitant]
     Route: 048
     Dates: start: 20110727
  5. LAVESTRA [Concomitant]
     Dates: start: 20110101
  6. LYRICA [Concomitant]
     Dates: start: 20110101
  7. METHOTREXATE [Suspect]
     Indication: RHEUMATOID ARTHRITIS
     Dosage: 4-8 CAPSULES
     Route: 048
     Dates: start: 20061004
  8. INDOMETHACIN [Concomitant]
     Route: 054
     Dates: start: 20051201
  9. METHOTREXATE [Concomitant]
     Dates: start: 20080618
  10. GOLIMUMAB [Suspect]
     Indication: RHEUMATOID ARTHRITIS
     Dosage: 4-8 CAPSULES
     Route: 058
     Dates: start: 20071010, end: 20110803
  11. GOLIMUMAB [Suspect]
     Route: 058
     Dates: start: 20110831, end: 20120215
  12. CARVEDILOL [Concomitant]
     Route: 048
     Dates: start: 20100101
  13. LEVOFLOXACIN [Concomitant]
     Dates: start: 20120220
  14. PLACEBO [Suspect]
     Indication: RHEUMATOID ARTHRITIS
     Route: 058
     Dates: start: 20061004, end: 20070905
  15. METHYLPREDNISOLONE [Concomitant]
     Route: 048
     Dates: start: 20051201
  16. FLUCONAZOLE [Concomitant]
     Dates: start: 20050901
  17. FOLIC ACID [Concomitant]
     Route: 048
     Dates: start: 20061004
  18. FUROSEMIDE [Concomitant]
     Dates: start: 20120220
  19. BISOPROLOL FUMARATE [Concomitant]
     Route: 048
     Dates: start: 20051201
  20. METFORMIN HCL [Concomitant]
     Dates: start: 20110101
  21. VITAMIN D [Concomitant]
     Route: 048
     Dates: start: 20050901

REACTIONS (2)
  - HEPATIC FAILURE [None]
  - HEPATITIS B [None]
